FAERS Safety Report 18230016 (Version 2)
Quarter: 2020Q3

REPORT INFORMATION
  Report Type: Spontaneous
  Country: JP (occurrence: JP)
  Receive Date: 20200904
  Receipt Date: 20200909
  Transmission Date: 20201103
  Serious: Yes (Hospitalization, Other)
  Sender: FDA-Public Use
  Company Number: JP-SANIK-2020SA234603AA

PATIENT

DRUGS (3)
  1. CLOPIDOGREL BISULFATE. [Suspect]
     Active Substance: CLOPIDOGREL BISULFATE
     Indication: PROPHYLAXIS
     Route: 048
  2. CLOPIDOGREL BISULFATE. [Suspect]
     Active Substance: CLOPIDOGREL BISULFATE
     Indication: LACUNAR INFARCTION
  3. BAYASPIRIN [Concomitant]
     Active Substance: ASPIRIN
     Indication: PROPHYLAXIS
     Route: 048

REACTIONS (7)
  - Cognitive disorder [Recovering/Resolving]
  - Seizure [Unknown]
  - Lacunar infarction [Unknown]
  - Cerebral amyloid angiopathy [Unknown]
  - Cerebral microhaemorrhage [Recovering/Resolving]
  - White matter lesion [Recovering/Resolving]
  - Cerebral infarction [Recovering/Resolving]
